FAERS Safety Report 11391652 (Version 3)
Quarter: 2015Q3

REPORT INFORMATION
  Report Type: Spontaneous
  Country: BR (occurrence: BR)
  Receive Date: 20150818
  Receipt Date: 20150827
  Transmission Date: 20151125
  Serious: Yes (Hospitalization)
  Sender: FDA-Public Use
  Company Number: BR-PFIZER INC-2015270612

PATIENT
  Age: 73 Year
  Sex: Male
  Weight: 95 kg

DRUGS (18)
  1. PROSCAR [Concomitant]
     Active Substance: FINASTERIDE
  2. INSULIN LISPRO [Concomitant]
     Active Substance: INSULIN LISPRO
  3. PANTOZOL [Concomitant]
     Active Substance: PANTOPRAZOLE SODIUM
  4. ALDACTONE [Concomitant]
     Active Substance: SPIRONOLACTONE
  5. CITONEURIN [Concomitant]
     Active Substance: CYANOCOBALAMIN\PYRIDOXINE HYDROCHLORIDE\THIAMINE
  6. LIPITOR [Concomitant]
     Active Substance: ATORVASTATIN CALCIUM
     Dosage: UNK
  7. PLAVIX [Concomitant]
     Active Substance: CLOPIDOGREL BISULFATE
  8. ALPHAGAN P [Concomitant]
     Active Substance: BRIMONIDINE TARTRATE
  9. DIOSMIN [Concomitant]
     Active Substance: DIOSMIN
  10. FRESH TEARS [Concomitant]
  11. PURAN [Concomitant]
     Active Substance: LEVOTHYROXINE SODIUM
  12. XALATAN [Suspect]
     Active Substance: LATANOPROST
     Indication: GLAUCOMA
     Dosage: 2 GTT (1 DROP IN EACH EYE), 1X/DAY
     Route: 047
     Dates: start: 1995
  13. LANTUS [Concomitant]
     Active Substance: INSULIN GLARGINE
  14. ZINCOLOK [Concomitant]
  15. ASPIRINA PREVENT [Concomitant]
     Active Substance: ASPIRIN
  16. AZOPT [Concomitant]
     Active Substance: BRINZOLAMIDE
  17. BETASERC [Concomitant]
     Active Substance: BETAHISTINE
  18. TIMOPTOL [Concomitant]
     Active Substance: TIMOLOL

REACTIONS (1)
  - Cardiac disorder [Recovered/Resolved]

NARRATIVE: CASE EVENT DATE: 2014
